FAERS Safety Report 10408444 (Version 1)
Quarter: 2014Q3

REPORT INFORMATION
  Report Type: Spontaneous
  Country: US (occurrence: None)
  Receive Date: 20140825
  Receipt Date: 20140825
  Transmission Date: 20150326
  Serious: Yes (Disabling)
  Sender: FDA-Public Use
  Company Number: None

PATIENT
  Age: 67 Year
  Sex: Male
  Weight: 84.82 kg

DRUGS (8)
  1. AMITRIPTYLINE [Concomitant]
     Active Substance: AMITRIPTYLINE
  2. CLINDAMYCIN HCL 150 ML RX # 4401555 VA PHARMACY [Suspect]
     Active Substance: CLINDAMYCIN HYDROCHLORIDE
     Indication: ANTIBIOTIC THERAPY
     Dosage: 150 MG 4 TIMES A DAY (2 CAPSULES) BY MOUTH
     Route: 048
     Dates: start: 20140807, end: 20140809
  3. FINASTERIDE. [Concomitant]
     Active Substance: FINASTERIDE
  4. SIMVASTATIN. [Concomitant]
     Active Substance: SIMVASTATIN
  5. LORATADINE. [Concomitant]
     Active Substance: LORATADINE
  6. CLINDAMYCIN HCL 150 ML RX # 4401555 VA PHARMACY [Suspect]
     Active Substance: CLINDAMYCIN HYDROCHLORIDE
     Indication: LACERATION
     Dosage: 150 MG 4 TIMES A DAY (2 CAPSULES) BY MOUTH
     Route: 048
     Dates: start: 20140807, end: 20140809
  7. HYDROCODONE/ACETAMINOPHEN [Concomitant]
     Active Substance: ACETAMINOPHEN\HYDROCODONE
  8. TAMSULOSIN HCL [Concomitant]
     Active Substance: TAMSULOSIN

REACTIONS (3)
  - Flatulence [None]
  - Dyspepsia [None]
  - Muscle spasms [None]

NARRATIVE: CASE EVENT DATE: 20140807
